FAERS Safety Report 16196339 (Version 2)
Quarter: 2019Q2

REPORT INFORMATION
  Report Type: Spontaneous
  Country: CA (occurrence: CA)
  Receive Date: 20190415
  Receipt Date: 20190628
  Transmission Date: 20190711
  Serious: Yes (Disabling, Other)
  Sender: FDA-Public Use
  Company Number: CA-SA-2019SA103004

PATIENT
  Age: 56 Year
  Sex: Female

DRUGS (3)
  1. DUPIXENT [Suspect]
     Active Substance: DUPILUMAB
     Indication: DERMATITIS ATOPIC
     Dosage: 600 MG, 1X
     Route: 058
     Dates: start: 20180313, end: 20180313
  2. DUPIXENT [Suspect]
     Active Substance: DUPILUMAB
     Dosage: 300 MG, QOW
     Route: 058
  3. TREMFYA [Suspect]
     Active Substance: GUSELKUMAB
     Indication: PRODUCT USED FOR UNKNOWN INDICATION

REACTIONS (9)
  - Burns third degree [Unknown]
  - Erythema [Unknown]
  - Skin exfoliation [Unknown]
  - Loss of personal independence in daily activities [Unknown]
  - Skin discolouration [Unknown]
  - Urticaria [Unknown]
  - Skin burning sensation [Unknown]
  - Skin wrinkling [Unknown]
  - Dry skin [Unknown]

NARRATIVE: CASE EVENT DATE: 20180314
